FAERS Safety Report 13597492 (Version 1)
Quarter: 2017Q2

REPORT INFORMATION
  Report Type: Spontaneous
  Country: GB (occurrence: GB)
  Receive Date: 20170531
  Receipt Date: 20170531
  Transmission Date: 20170830
  Serious: Yes (Death)
  Sender: FDA-Public Use
  Company Number: GB-009507513-1705GBR013446

PATIENT
  Age: 18 Year
  Sex: Male

DRUGS (1)
  1. PROPECIA [Suspect]
     Active Substance: FINASTERIDE
     Indication: ALOPECIA
     Dosage: TAKEN FOR 3 MONTHS. STOPPED FOR 1 MONTH THEN RESTARTED AGAIN. HAS SINCE STOPPED AGAIN.
     Route: 048
     Dates: start: 201304

REACTIONS (13)
  - Panic attack [Unknown]
  - Suicidal ideation [Not Recovered/Not Resolved]
  - Dry skin [Unknown]
  - Memory impairment [Unknown]
  - Insomnia [Unknown]
  - Loss of libido [Unknown]
  - Affect lability [Unknown]
  - Feeling abnormal [Not Recovered/Not Resolved]
  - Death [Fatal]
  - Depression [Unknown]
  - Fatigue [Unknown]
  - Erectile dysfunction [Unknown]
  - Anxiety [Unknown]

NARRATIVE: CASE EVENT DATE: 20170213
